FAERS Safety Report 17225939 (Version 2)
Quarter: 2020Q3

REPORT INFORMATION
  Report Type: Spontaneous
  Country: DE (occurrence: DE)
  Receive Date: 20200102
  Receipt Date: 20200109
  Transmission Date: 20201104
  Serious: Yes (Death)
  Sender: FDA-Public Use
  Company Number: DE-BAUSCH-BL-2019-057264

PATIENT
  Sex: Male

DRUGS (11)
  1. RITUXAN [Suspect]
     Active Substance: RITUXIMAB
     Dosage: FURTHER LINE, GMALL, B?ALL
     Route: 065
     Dates: start: 20190507
  2. METHOTREXATE. [Suspect]
     Active Substance: METHOTREXATE
     Indication: DIFFUSE LARGE B-CELL LYMPHOMA
     Dosage: 1ST LINE, R?CHOEP 8 CYCLES
     Route: 065
     Dates: start: 20180815
  3. AZATHIOPRINE. [Suspect]
     Active Substance: AZATHIOPRINE
     Indication: DIFFUSE LARGE B-CELL LYMPHOMA
     Dosage: 1ST LINE, R?CHOEP 8 CYCLES
     Route: 065
     Dates: start: 20180815
  4. RITUXAN [Suspect]
     Active Substance: RITUXIMAB
     Indication: DIFFUSE LARGE B-CELL LYMPHOMA
     Dosage: 2ND LINE, R?DHAOX 2 CYCLES
     Route: 065
     Dates: start: 20190323
  5. RITUXAN [Suspect]
     Active Substance: RITUXIMAB
     Dosage: 1ST LINE, R?CHOEP 8 CYCLES
     Route: 065
     Dates: start: 20180815
  6. BENDAMUSTINE [Suspect]
     Active Substance: BENDAMUSTINE
     Indication: DIFFUSE LARGE B-CELL LYMPHOMA
     Dosage: 1ST LINE, R?CHOEP 8 CYCLES
     Route: 065
     Dates: start: 20180815
  7. CYCLOPHOSPHAMIDE. [Suspect]
     Active Substance: CYCLOPHOSPHAMIDE
     Indication: DIFFUSE LARGE B-CELL LYMPHOMA
     Dosage: 1ST LINE, R?CHOEP 8 CYCLES
     Route: 065
     Dates: start: 20180815
  8. THALIDOMIDE [Suspect]
     Active Substance: THALIDOMIDE
     Indication: DIFFUSE LARGE B-CELL LYMPHOMA
     Dosage: 1ST LINE, R?CHOEP 8 CYCLES
     Route: 065
     Dates: start: 20180815
  9. DEXAMETHASONE. [Suspect]
     Active Substance: DEXAMETHASONE
     Indication: DIFFUSE LARGE B-CELL LYMPHOMA
     Dosage: 1ST LINE, R?CHOEP 8 CYCLES
     Route: 065
     Dates: start: 20180815
  10. POLATUZUMAB VEDOTIN. [Suspect]
     Active Substance: POLATUZUMAB VEDOTIN
     Indication: DIFFUSE LARGE B-CELL LYMPHOMA
     Route: 065
     Dates: start: 20180815
  11. RITUXAN [Suspect]
     Active Substance: RITUXIMAB
     Dosage: FURTHER LINE, R?BENDAMSUTIN?MITOXANTRONE
     Route: 065
     Dates: start: 20190607

REACTIONS (6)
  - Death [Fatal]
  - Aspartate aminotransferase increased [Unknown]
  - Blood bilirubin decreased [Unknown]
  - Platelet count decreased [Unknown]
  - Neutrophil count decreased [Unknown]
  - Blood creatinine increased [Unknown]
